FAERS Safety Report 14802681 (Version 2)
Quarter: 2018Q2

REPORT INFORMATION
  Report Type: Spontaneous
  Country: CA (occurrence: CA)
  Receive Date: 20180424
  Receipt Date: 20180618
  Transmission Date: 20180711
  Serious: Yes (Other)
  Sender: FDA-Public Use
  Company Number: CA-PFIZER INC-2018162961

PATIENT
  Age: 35 Year
  Sex: Male

DRUGS (1)
  1. CIPROFLOXACIN HCL [Suspect]
     Active Substance: CIPROFLOXACIN HYDROCHLORIDE
     Dosage: UNK

REACTIONS (7)
  - Frequent bowel movements [Unknown]
  - Drug hypersensitivity [Unknown]
  - General physical health deterioration [Unknown]
  - Anal fissure [Unknown]
  - Malaise [Not Recovered/Not Resolved]
  - Anal abscess [Unknown]
  - Abdominal pain [Unknown]
